FAERS Safety Report 10148867 (Version 3)
Quarter: 2014Q2

REPORT INFORMATION
  Report Type: Spontaneous
  Country: AU (occurrence: AU)
  Receive Date: 20140502
  Receipt Date: 20140527
  Transmission Date: 20141212
  Serious: Yes (Death, Hospitalization)
  Sender: FDA-Public Use
  Company Number: AU-AMGEN-AUSSP2014009628

PATIENT
  Age: 62 Year
  Sex: Male

DRUGS (2)
  1. XGEVA [Suspect]
     Indication: METASTASES TO BONE
     Dosage: 120 MG, Q4WK
     Route: 058
     Dates: start: 20140103
  2. ZYTIGA [Concomitant]

REACTIONS (7)
  - Death [Fatal]
  - Investigation [Not Recovered/Not Resolved]
  - Malaise [Not Recovered/Not Resolved]
  - Blood test abnormal [Unknown]
  - Drug ineffective [Not Recovered/Not Resolved]
  - Inappropriate schedule of drug administration [Unknown]
  - Blood calcium decreased [Unknown]
